FAERS Safety Report 9457289 (Version 1)
Quarter: 2013Q3

REPORT INFORMATION
  Report Type: Spontaneous
  Country: BR (occurrence: BR)
  Receive Date: 20130814
  Receipt Date: 20130814
  Transmission Date: 20140515
  Serious: Yes (Other)
  Sender: FDA-Public Use
  Company Number: PHHY2013BR085542

PATIENT
  Age: 88 Year
  Sex: Male

DRUGS (9)
  1. EXELON PATCH [Suspect]
     Dosage: 9MG / 5CM2
  2. SPIRONOLACTONE [Suspect]
     Dosage: UNK UKN, UNK
  3. CARVEDILOL [Suspect]
     Dosage: UNK UKN, UNK
  4. TOPIRAMATE [Suspect]
     Dosage: UNK UKN, UNK
  5. HALDOL [Suspect]
     Dosage: UNK UKN, UNK
  6. GARDENAL//PHENOBARBITAL [Suspect]
     Dosage: UNK UKN, UNK
  7. MICARDIS [Suspect]
     Indication: BLOOD PRESSURE
     Dosage: UNK UKN, UNK
  8. CLOPIDOGREL BISULFATE [Suspect]
     Dosage: UNK UKN, UNK
  9. CEBRALAT [Suspect]
     Dosage: UNK UKN, UNK

REACTIONS (3)
  - Psychotic disorder [Unknown]
  - Sensory loss [Unknown]
  - Aggression [Unknown]
